FAERS Safety Report 5365330-8 (Version None)
Quarter: 2007Q2

REPORT INFORMATION
  Report Type: 
  Country: None (occurrence: None)
  Receive Date: 20070530
  Receipt Date: 20070314
  Transmission Date: 20071010
  Serious: No
  Sender: FDA-Public Use
  Company Number: 2006PV022595

PATIENT
  Age: 54 Year
  Sex: Female
  Weight: 95.2554 kg

DRUGS (5)
  1. BYETTA [Suspect]
     Indication: DIABETES MELLITUS NON-INSULIN-DEPENDENT
     Dosage: 5 MCG;BID;SC ; 10 MCG;BID;SC ; 5 MCG;BID;SC
     Route: 058
     Dates: start: 20061001, end: 20061208
  2. BYETTA [Suspect]
     Indication: DIABETES MELLITUS NON-INSULIN-DEPENDENT
     Dosage: 5 MCG;BID;SC ; 10 MCG;BID;SC ; 5 MCG;BID;SC
     Route: 058
     Dates: start: 20060901
  3. BYETTA [Suspect]
     Indication: DIABETES MELLITUS NON-INSULIN-DEPENDENT
     Dosage: 5 MCG;BID;SC ; 10 MCG;BID;SC ; 5 MCG;BID;SC
     Route: 058
     Dates: start: 20061209
  4. GLUCOPHAGE [Concomitant]
  5. DIOVAN [Concomitant]

REACTIONS (8)
  - ASTHENIA [None]
  - CHEST DISCOMFORT [None]
  - FEELING JITTERY [None]
  - HEART RATE INCREASED [None]
  - HYPOGLYCAEMIA [None]
  - INJECTION SITE BRUISING [None]
  - TREMOR [None]
  - WEIGHT DECREASED [None]
